FAERS Safety Report 12277029 (Version 1)
Quarter: 2016Q2

REPORT INFORMATION
  Report Type: Report from Study
  Country: US (occurrence: US)
  Receive Date: 20160418
  Receipt Date: 20160418
  Transmission Date: 20160815
  Serious: Yes (Hospitalization, Other)
  Sender: FDA-Public Use
  Company Number: US-BAYER-2016-013942

PATIENT
  Age: 73 Year
  Sex: Male

DRUGS (2)
  1. NEXAVAR [Suspect]
     Active Substance: SORAFENIB
     Indication: HEPATOCELLULAR CARCINOMA
     Dosage: 400 MG, BID
     Route: 048
     Dates: start: 20160126, end: 20160306
  2. NEXAVAR [Suspect]
     Active Substance: SORAFENIB
     Indication: HEPATOCELLULAR CARCINOMA
     Dosage: 200 MG, BID
     Route: 048
     Dates: start: 20160113, end: 20160125

REACTIONS (17)
  - Tumour marker increased [None]
  - Blood bilirubin increased [None]
  - Decreased appetite [None]
  - Diarrhoea [None]
  - Decreased appetite [None]
  - Vomiting [None]
  - Diarrhoea [None]
  - Abdominal discomfort [None]
  - Abdominal discomfort [None]
  - Haemoptysis [None]
  - Pyrexia [None]
  - Weight decreased [None]
  - Headache [None]
  - Hiccups [Not Recovered/Not Resolved]
  - Back pain [None]
  - Jaundice [None]
  - Diarrhoea [None]

NARRATIVE: CASE EVENT DATE: 201601
